FAERS Safety Report 20002411 (Version 1)
Quarter: 2021Q4

REPORT INFORMATION
  Report Type: Report from Study
  Country: CO (occurrence: CO)
  Receive Date: 20211027
  Receipt Date: 20211027
  Transmission Date: 20220303
  Serious: Yes (Other)
  Sender: FDA-Public Use
  Company Number: CO-NOVARTISPH-NVSC2021CO238094

PATIENT
  Age: 63 Year
  Sex: Female
  Weight: 84 kg

DRUGS (4)
  1. LOSARTAN [Suspect]
     Active Substance: LOSARTAN
     Indication: Hypertension
     Dosage: 50 MG, Q12H
     Route: 048
     Dates: start: 2016
  2. METOPROLOL [Suspect]
     Active Substance: METOPROLOL
     Indication: Hypertension
     Dosage: 50 MG, QD
     Route: 048
     Dates: start: 2019
  3. HYDROCHLOROTHIAZIDE [Concomitant]
     Active Substance: HYDROCHLOROTHIAZIDE
     Indication: Polyuria
     Dosage: 25 MG, QD
     Route: 048
     Dates: start: 2019
  4. ASPIRIN [Concomitant]
     Active Substance: ASPIRIN
     Indication: Blood disorder
     Dosage: 100 MG, QD
     Route: 048
     Dates: start: 2019

REACTIONS (3)
  - Lymph node tuberculosis [Unknown]
  - Polycythaemia vera [Unknown]
  - COVID-19 [Unknown]

NARRATIVE: CASE EVENT DATE: 20190101
